FAERS Safety Report 10226300 (Version 1)
Quarter: 2014Q2

REPORT INFORMATION
  Report Type: Spontaneous
  Country: IT (occurrence: IT)
  Receive Date: 20140609
  Receipt Date: 20140609
  Transmission Date: 20141212
  Serious: Yes (Hospitalization)
  Sender: FDA-Public Use
  Company Number: IT-TEVA-485377ISR

PATIENT
  Age: 69 Year
  Sex: Male
  Weight: 80 kg

DRUGS (3)
  1. IRINOTECAN HYDROCHLORIDE TRIHYDRATE [Suspect]
     Indication: RECTAL CANCER METASTATIC
     Dosage: 340 MG TOTAL
     Route: 042
     Dates: start: 20140128, end: 20140128
  2. XELODA - ROCHE REGISTRATION LIMITED [Suspect]
     Indication: RECTAL CANCER METASTATIC
     Dosage: 4 DF TOTAL
     Route: 048
     Dates: start: 20140128, end: 20140128
  3. ERBITUX -  MERCK KGAA [Suspect]
     Indication: RECTAL CANCER METASTATIC
     Dosage: 760 MG CYCLICAL
     Route: 042
     Dates: start: 20140128, end: 20140429

REACTIONS (4)
  - Hyperpyrexia [Recovered/Resolved]
  - Haemoglobin decreased [None]
  - Blood creatinine increased [None]
  - Body temperature increased [None]
